FAERS Safety Report 13186607 (Version 1)
Quarter: 2017Q1

REPORT INFORMATION
  Report Type: Report from Study
  Country: US (occurrence: US)
  Receive Date: 20170205
  Receipt Date: 20170205
  Transmission Date: 20170428
  Serious: Yes (Other)
  Sender: FDA-Public Use
  Company Number: US-EXELIXIS-CABO-16006524

PATIENT

DRUGS (1)
  1. COMETRIQ [Suspect]
     Active Substance: CABOZANTINIB S-MALATE
     Indication: THYROID CANCER
     Dosage: 140 MG, QD
     Route: 048
     Dates: start: 20160513

REACTIONS (8)
  - Skin discolouration [Unknown]
  - Rash [Unknown]
  - Neoplasm malignant [Unknown]
  - Dizziness [Unknown]
  - Peripheral swelling [Unknown]
  - Hypotension [Unknown]
  - Headache [Unknown]
  - Hair colour changes [Unknown]

NARRATIVE: CASE EVENT DATE: 20160724
